FAERS Safety Report 5403618-2 (Version None)
Quarter: 2007Q3

REPORT INFORMATION
  Report Type: 
  Country: None (occurrence: None)
  Receive Date: 20070802
  Receipt Date: 20070725
  Transmission Date: 20080115
  Serious: Yes (Other)
  Sender: FDA-Public Use
  Company Number: PHBS2006BE19795

PATIENT
  Age: 83 Year
  Sex: Female

DRUGS (10)
  1. ZOMETA [Suspect]
     Indication: METASTASES TO BONE
     Dosage: UNK, QMO
     Route: 065
     Dates: start: 20051201
  2. LIPANTHYL [Concomitant]
  3. AMLODIPINE [Concomitant]
  4. CONTRAMAL [Concomitant]
  5. LEVOTHYROXINE SODIUM [Concomitant]
  6. ASPIRIN [Concomitant]
  7. LOORTAN [Concomitant]
  8. MOXON [Concomitant]
  9. LANITOP [Concomitant]
  10. NSAID'S [Suspect]

REACTIONS (10)
  - ANURIA [None]
  - BIOPSY KIDNEY ABNORMAL [None]
  - BLOOD CREATININE INCREASED [None]
  - BLOOD IMMUNOGLOBULIN G INCREASED [None]
  - DIALYSIS [None]
  - INFLAMMATION [None]
  - LIGHT CHAIN ANALYSIS INCREASED [None]
  - MULTIPLE MYELOMA [None]
  - RENAL FAILURE ACUTE [None]
  - TUBULOINTERSTITIAL NEPHRITIS [None]
